FAERS Safety Report 8519143-6 (Version None)
Quarter: 2012Q3

REPORT INFORMATION
  Report Type: 
  Country: None (occurrence: None)
  Receive Date: 20120718
  Receipt Date: 20120710
  Transmission Date: 20120928
  Serious: Yes (Other)
  Sender: FDA-Public Use
  Company Number: FR-RB-042264-12

PATIENT
  Sex: Male

DRUGS (1)
  1. SUBUTEX [Suspect]
     Indication: DEPENDENCE
     Route: 048
     Dates: start: 20080101

REACTIONS (1)
  - INFERTILITY [None]
